FAERS Safety Report 16366232 (Version 3)
Quarter: 2020Q1

REPORT INFORMATION
  Report Type: Spontaneous
  Country: FR (occurrence: FR)
  Receive Date: 20190529
  Receipt Date: 20200204
  Transmission Date: 20200409
  Serious: Yes (Hospitalization)
  Sender: FDA-Public Use
  Company Number: FR-ROCHE-2326678

PATIENT
  Age: 83 Year
  Sex: Female

DRUGS (14)
  1. TAGAMET [Concomitant]
     Active Substance: CIMETIDINE
     Indication: PRODUCT USED FOR UNKNOWN INDICATION
     Route: 065
  2. BACTRIM [Suspect]
     Active Substance: SULFAMETHOXAZOLE\TRIMETHOPRIM
     Indication: PRODUCT USED FOR UNKNOWN INDICATION
     Dosage: 1 DF (0.4286), THRICE WEEKLY
     Route: 048
     Dates: start: 20130704, end: 20130819
  3. BENDAMUSTINE HYDROCHLORIDE. [Suspect]
     Active Substance: BENDAMUSTINE HYDROCHLORIDE
     Indication: B-CELL LYMPHOMA
     Dosage: 90 MG/M2, CYCLIC (2 IN 1 MONTH)
     Route: 042
     Dates: start: 20130703
  4. CEFUROXIME. [Suspect]
     Active Substance: CEFUROXIME
     Indication: PYREXIA
     Route: 065
     Dates: start: 20130818
  5. MABTHERA [Suspect]
     Active Substance: RITUXIMAB
     Indication: B-CELL LYMPHOMA
     Route: 041
     Dates: start: 20130703
  6. LASILIX [FUROSEMIDE] [Concomitant]
     Active Substance: FUROSEMIDE
     Indication: PRODUCT USED FOR UNKNOWN INDICATION
     Dosage: UNK UNK, UNKNOWN FREQ.
     Route: 065
     Dates: start: 20130801
  7. ATARAX [Concomitant]
     Active Substance: HYDROXYZINE HYDROCHLORIDE
     Indication: PRODUCT USED FOR UNKNOWN INDICATION
     Route: 065
  8. CIPLOX [CIPROFLOXACIN] [Suspect]
     Active Substance: CIPROFLOXACIN
     Indication: PYREXIA
     Route: 048
     Dates: start: 20130818, end: 20130819
  9. METHYLPREDNISOLONE. [Suspect]
     Active Substance: METHYLPREDNISOLONE
     Indication: B-CELL LYMPHOMA
     Route: 065
     Dates: start: 201307
  10. AERIUS (DESLORATADINE) [Concomitant]
     Active Substance: DESLORATADINE
     Indication: FACE OEDEMA
     Dosage: UNK UNK, UNKNOWN FREQ.
     Route: 065
     Dates: start: 20130802
  11. MABTHERA [Suspect]
     Active Substance: RITUXIMAB
     Indication: NON-HODGKIN^S LYMPHOMA
     Route: 041
     Dates: start: 20130731, end: 20130731
  12. MOTILIUM [Suspect]
     Active Substance: DOMPERIDONE
     Indication: PRODUCT USED FOR UNKNOWN INDICATION
     Route: 065
     Dates: start: 20130814, end: 20130815
  13. BENDAMUSTINE HYDROCHLORIDE. [Suspect]
     Active Substance: BENDAMUSTINE HYDROCHLORIDE
     Indication: NON-HODGKIN^S LYMPHOMA
     Dosage: 90 MG/M2, CYCLIC (2 IN 1 MONTH), ON 01/AUG/2013, RECEIVED MOST RECENT DOSE
     Route: 042
     Dates: start: 20130731
  14. METHYLPREDNISOLONE. [Suspect]
     Active Substance: METHYLPREDNISOLONE
     Indication: NON-HODGKIN^S LYMPHOMA
     Route: 065

REACTIONS (7)
  - Agranulocytosis [Recovered/Resolved]
  - Leukopenia [Unknown]
  - Pancytopenia [Recovering/Resolving]
  - Prescribed underdose [Unknown]
  - Rash maculo-papular [Unknown]
  - Toxic skin eruption [Recovered/Resolved]
  - Febrile neutropenia [Recovering/Resolving]

NARRATIVE: CASE EVENT DATE: 20130703
